FAERS Safety Report 13720756 (Version 2)
Quarter: 2017Q3

REPORT INFORMATION
  Report Type: Spontaneous
  Country: US (occurrence: US)
  Receive Date: 20170706
  Receipt Date: 20170706
  Transmission Date: 20171127
  Serious: No
  Sender: FDA-Public Use
  Company Number: PHHY2017US099206

PATIENT
  Age: 31 Year
  Sex: Female

DRUGS (2)
  1. DICLOFENAC POTASSIUM. [Suspect]
     Active Substance: DICLOFENAC POTASSIUM
     Indication: MIGRAINE
  2. DICLOFENAC POTASSIUM. [Suspect]
     Active Substance: DICLOFENAC POTASSIUM
     Indication: NEW DAILY PERSISTENT HEADACHE
     Dosage: 50 MG, UNK (1 PACKET WITH 1 TO 2 OUNCES)
     Route: 048
     Dates: start: 20170518

REACTIONS (1)
  - Drug ineffective [Unknown]

NARRATIVE: CASE EVENT DATE: 2017
